FAERS Safety Report 9989473 (Version 1)
Quarter: 2013Q4

REPORT INFORMATION
  Report Type: Spontaneous
  Country: US (occurrence: None)
  Receive Date: 20131104
  Receipt Date: 20131104
  Transmission Date: 20140711
  Serious: Yes (Hospitalization)
  Sender: FDA-Public Use
  Company Number: LMI-2013-00447

PATIENT
  Age: 70 Year
  Sex: Male
  Weight: 145.15 kg

DRUGS (8)
  1. DEFINITY [Suspect]
     Indication: ECHOCARDIOGRAM
     Dosage: 1 VIAL DEFINITY DILUTED IN 8 ML
     Dates: start: 20131021, end: 20131021
  2. ALBUTEROL [Concomitant]
  3. LASIX [Concomitant]
  4. PRAVACHOL [Concomitant]
  5. COUMADIN [Concomitant]
  6. PLAVIX [Concomitant]
  7. COREG [Concomitant]
  8. TYLENOL [Concomitant]

REACTIONS (5)
  - Hypoxia [None]
  - Syncope [None]
  - Rales [None]
  - Cardiac failure [None]
  - Condition aggravated [None]
